FAERS Safety Report 6463580-0 (Version None)
Quarter: 2009Q4

REPORT INFORMATION
  Report Type: 
  Country: None (occurrence: None)
  Receive Date: 20091201
  Receipt Date: 20091125
  Transmission Date: 20100525
  Serious: Yes (Hospitalization)
  Sender: FDA-Public Use
  Company Number: HU-WYE-H10758409

PATIENT
  Sex: Male
  Weight: 79 kg

DRUGS (5)
  1. TEMSIROLIMUS [Suspect]
     Indication: METASTATIC RENAL CELL CARCINOMA
     Route: 042
     Dates: start: 20090617, end: 20090902
  2. CARDURA [Concomitant]
     Indication: HYPERTENSION
     Dosage: NOT PROVIDED
     Dates: end: 20090903
  3. METOPROLOL [Concomitant]
     Indication: HYPERTENSION
     Dosage: 25MG FREQUENCY NOT SPECIFIED
  4. BEVACIZUMAB [Suspect]
     Indication: METASTATIC RENAL CELL CARCINOMA
     Dosage: 820MG (10MG/KG) EVERY 2 WEEKS
     Route: 042
     Dates: start: 20090617, end: 20090826
  5. ENALAPRIL MALEATE [Concomitant]
     Indication: HYPERTENSION
     Dosage: 5MG FREQUENCY NOT SPECIFIED

REACTIONS (5)
  - DERMATITIS ALLERGIC [None]
  - HEADACHE [None]
  - HYPERGLYCAEMIA [None]
  - HYPERSENSITIVITY [None]
  - SINUSITIS [None]
